FAERS Safety Report 10147090 (Version 1)
Quarter: 2014Q2

REPORT INFORMATION
  Report Type: Spontaneous
  Country: US (occurrence: None)
  Receive Date: 20140430
  Receipt Date: 20140430
  Transmission Date: 20141212
  Serious: Yes (Hospitalization)
  Sender: FDA-Public Use
  Company Number: None

PATIENT
  Age: 59 Year
  Sex: Male

DRUGS (4)
  1. VANCOMYCIN [Suspect]
     Indication: INFECTION
     Dosage: 1000MG EVERY 8 HOURS IV
     Route: 042
     Dates: start: 20130812, end: 20130820
  2. MULTIVITAMIN [Concomitant]
  3. OXYCONTIN [Concomitant]
  4. HYDROMORPHONE [Concomitant]

REACTIONS (2)
  - Drug level increased [None]
  - Blood creatinine increased [None]
